FAERS Safety Report 15956498 (Version 1)
Quarter: 2019Q1

REPORT INFORMATION
  Report Type: Spontaneous
  Country: US (occurrence: US)
  Receive Date: 20190213
  Receipt Date: 20190213
  Transmission Date: 20190417
  Serious: Yes (Hospitalization)
  Sender: FDA-Public Use
  Company Number: None

PATIENT
  Sex: Male

DRUGS (11)
  1. LUCENTIS [Suspect]
     Active Substance: RANIBIZUMAB
     Indication: RETINAL VEIN OCCLUSION
     Dosage: 0.5 MG EVERY 28 DAYS; OPHTHALMIC?
     Route: 047
     Dates: start: 20161101
  2. DIGESTIVE CAP ADVANTAG [Concomitant]
  3. FLOMAX CAP 0.4MG [Concomitant]
  4. GARLIC TAB 100MG [Concomitant]
  5. PREDNISONE PAK 5MG [Concomitant]
  6. GLUCOSAMINE TAB 500MG [Concomitant]
  7. PREDNISONE TAB 2.5MG [Concomitant]
  8. LATANOPROST SOL 0.005% [Concomitant]
  9. LUCENTIS [Suspect]
     Active Substance: RANIBIZUMAB
     Indication: MACULAR OEDEMA
     Dosage: 0.5 MG EVERY 28 DAYS; OPHTHALMIC?
     Route: 047
     Dates: start: 20161101
  10. VIT D3/VIT C CAP 1000-500 [Concomitant]
  11. ASPIRIN TAB 81MG [Concomitant]

REACTIONS (2)
  - Fall [None]
  - Hip fracture [None]
